FAERS Safety Report 8920964 (Version 2)
Quarter: 2014Q3

REPORT INFORMATION
  Report Type: Spontaneous
  Country: US (occurrence: US)
  Receive Date: 20121121
  Receipt Date: 20140815
  Transmission Date: 20150326
  Serious: Yes (Hospitalization, Other)
  Sender: FDA-Public Use
  Company Number: US-009507513-1211USA007523

PATIENT
  Sex: Female
  Weight: 59 kg

DRUGS (1)
  1. NUVARING [Suspect]
     Active Substance: ETHINYL ESTRADIOL\ETONOGESTREL
     Indication: PRODUCT USED FOR UNKNOWN INDICATION
     Dosage: UNK
     Route: 067
     Dates: start: 2008, end: 2010

REACTIONS (13)
  - Vena cava filter insertion [Recovered/Resolved]
  - Dyspnoea exertional [Unknown]
  - Sciatica [Unknown]
  - Limb operation [Unknown]
  - Vulvovaginal pruritus [Unknown]
  - Asthma [Unknown]
  - Vaginal odour [Unknown]
  - Deep vein thrombosis [Unknown]
  - Vena cava filter removal [Unknown]
  - Venous stent insertion [Unknown]
  - Blood glucose abnormal [Unknown]
  - Vaginal discharge [Unknown]
  - Smear vaginal abnormal [Unknown]

NARRATIVE: CASE EVENT DATE: 20101022
